FAERS Safety Report 13742375 (Version 2)
Quarter: 2017Q3

REPORT INFORMATION
  Report Type: Report from Study
  Country: US (occurrence: US)
  Receive Date: 20170711
  Receipt Date: 20170718
  Transmission Date: 20171127
  Serious: Yes (Hospitalization, Other)
  Sender: FDA-Public Use
  Company Number: US-ALEXION PHARMACEUTICALS INC-A201707596

PATIENT
  Age: 41 Year
  Sex: Female

DRUGS (1)
  1. SOLIRIS [Suspect]
     Active Substance: ECULIZUMAB
     Indication: HAEMOLYTIC URAEMIC SYNDROME
     Dosage: 900 MG, QW
     Route: 042
     Dates: start: 20170627, end: 20170704

REACTIONS (2)
  - Respiratory distress [Not Recovered/Not Resolved]
  - Haemorrhage [Unknown]

NARRATIVE: CASE EVENT DATE: 20170705
